FAERS Safety Report 4639812-8 (Version None)
Quarter: 2005Q2

REPORT INFORMATION
  Report Type: 
  Country: None (occurrence: None)
  Receive Date: 20050415
  Receipt Date: 20050331
  Transmission Date: 20051028
  Serious: Yes (Other)
  Sender: FDA-Public Use
  Company Number: 2005-UK-00485UK

PATIENT
  Age: 62 Year
  Sex: Female

DRUGS (5)
  1. SPIRIVA [Suspect]
     Indication: CHRONIC OBSTRUCTIVE PULMONARY DISEASE
     Dosage: 18 MCG (18 MCG)
     Route: 055
     Dates: start: 20050203, end: 20050212
  2. CO-CODAMOL (PANADEINE CO) (TA) [Concomitant]
  3. BECLOMETHASONE (NR) [Concomitant]
  4. SALBUTAMOL (SALBUTAMOL) (NR) [Concomitant]
  5. PREMPAK (PREMARIN PLUS) (NR) [Concomitant]

REACTIONS (3)
  - DYSPNOEA EXACERBATED [None]
  - OEDEMA MOUTH [None]
  - SWELLING FACE [None]
